FAERS Safety Report 5735753-3 (Version None)
Quarter: 2008Q2

REPORT INFORMATION
  Report Type: 
  Country: None (occurrence: None)
  Receive Date: 20080508
  Receipt Date: 20071015
  Transmission Date: 20081010
  Serious: Yes (Hospitalization)
  Sender: FDA-Public Use
  Company Number: 2007RR-10761

PATIENT
  Age: 42 Year
  Sex: Female

DRUGS (1)
  1. CLINDAMICINA RANBAXY 150MG CAPSULES (CLINDAMYCIN) UNKNOWN [Suspect]
     Indication: GINGIVAL INFECTION
     Dosage: 150 MG, QID, ORAL
     Route: 048

REACTIONS (8)
  - ANOREXIA [None]
  - ASTHENIA [None]
  - FATIGUE [None]
  - HEPATITIS CHOLESTATIC [None]
  - HEPATOTOXICITY [None]
  - NAUSEA [None]
  - PROTHROMBIN TIME PROLONGED [None]
  - VOMITING [None]
